FAERS Safety Report 5272536-5 (Version None)
Quarter: 2007Q1

REPORT INFORMATION
  Report Type: 
  Country: None (occurrence: None)
  Receive Date: 20070322
  Receipt Date: 20061031
  Transmission Date: 20070707
  Serious: No
  Sender: FDA-Public Use
  Company Number: US-BRISTOL-MYERS SQUIBB COMPANY-13562129

PATIENT
  Sex: Female

DRUGS (1)
  1. KENALOG [Suspect]
     Dosage: KENALOG 30 MG IN JAN, MARCH, AND APRIL INTO SMALL AREA OF FACE.
     Route: 023

REACTIONS (1)
  - BLOOD CORTISOL INCREASED [None]
